FAERS Safety Report 19330493 (Version 1)
Quarter: 2021Q2

REPORT INFORMATION
  Report Type: Report from Study
  Country: DE (occurrence: DE)
  Receive Date: 20210528
  Receipt Date: 20210528
  Transmission Date: 20210717
  Serious: Yes (Other)
  Sender: FDA-Public Use
  Company Number: DE-JAZZ-2021-DE-009315

PATIENT
  Age: 61 Year
  Sex: Female
  Weight: 97.9 kg

DRUGS (1)
  1. CPX?351 [Suspect]
     Active Substance: CYTARABINE\DAUNORUBICIN
     Dosage: 89.32 MG DAUNORUBUCIN, 203 MG CYTARABINE
     Route: 042
     Dates: start: 20210504, end: 20210508

REACTIONS (1)
  - Pulmonary toxicity [Not Recovered/Not Resolved]

NARRATIVE: CASE EVENT DATE: 20210511
